FAERS Safety Report 4692751-9 (Version None)
Quarter: 2005Q2

REPORT INFORMATION
  Report Type: 
  Country: None (occurrence: None)
  Receive Date: 20050617
  Receipt Date: 20050609
  Transmission Date: 20051028
  Serious: Yes (Hospitalization)
  Sender: FDA-Public Use
  Company Number: FR-GLAXOSMITHKLINE-B0384186A

PATIENT
  Age: 63 Year
  Sex: Female

DRUGS (1)
  1. AUGMENTIN '125' [Suspect]
     Indication: ILL-DEFINED DISORDER
     Route: 048
     Dates: start: 20040824, end: 20040827

REACTIONS (5)
  - ANGIONEUROTIC OEDEMA [None]
  - FIXED ERUPTION [None]
  - OEDEMA PERIPHERAL [None]
  - PRURIGO [None]
  - SKIN EXFOLIATION [None]
